FAERS Safety Report 16074383 (Version 2)
Quarter: 2019Q1

REPORT INFORMATION
  Report Type: Spontaneous
  Country: US (occurrence: US)
  Receive Date: 20190314
  Receipt Date: 20190322
  Transmission Date: 20190418
  Serious: Yes (Other)
  Sender: FDA-Public Use
  Company Number: US-TEVA-2019-US-1019993

PATIENT
  Age: 85 Year
  Sex: Male

DRUGS (1)
  1. SUCRALFATE TABLET [Suspect]
     Active Substance: SUCRALFATE
     Indication: OESOPHAGEAL ULCER
     Dosage: 2 MILLIGRAM DAILY; TWO TABLETS IN THE MORNING AND TWO TABLETS IN THE AFTERNOON

REACTIONS (1)
  - Gastric ulcer [Unknown]

NARRATIVE: CASE EVENT DATE: 20190211
